FAERS Safety Report 5067000-2 (Version None)
Quarter: 2006Q3

REPORT INFORMATION
  Report Type: 
  Country: None (occurrence: None)
  Receive Date: 20060726
  Receipt Date: 20060713
  Transmission Date: 20061208
  Serious: Yes (Hospitalization)
  Sender: FDA-Public Use
  Company Number: 226898

PATIENT
  Age: 54 Year
  Sex: Male

DRUGS (11)
  1. AVASTIN [Suspect]
     Indication: NON-SMALL CELL LUNG CANCER
     Dosage: 10 MG/KG,
     Dates: end: 20060710
  2. TAXOL [Suspect]
     Indication: NON-SMALL CELL LUNG CANCER
     Dosage: 45 MG/M2,
     Dates: end: 20060710
  3. CARBOPLATIN [Suspect]
     Indication: NON-SMALL CELL LUNG CANCER
     Dosage: 2 AUC,
     Dates: end: 20060710
  4. DIFLUCAN [Concomitant]
  5. DILAUDID [Concomitant]
  6. COLACE (DOCUSATE SODIUM) [Concomitant]
  7. ATIVAN [Concomitant]
  8. DURAGESIC-100 [Concomitant]
  9. HYDROCHLOROTHIAZIDE [Concomitant]
  10. ACE INHIBITOR (ANGIOTENSIN-CONVERTING ENZYME INHIBITORS) [Concomitant]
  11. RADIATION THERAPY (RADIATION THERAPY) [Concomitant]

REACTIONS (14)
  - ALANINE AMINOTRANSFERASE INCREASED [None]
  - ASPARTATE AMINOTRANSFERASE INCREASED [None]
  - BLOOD ALKALINE PHOSPHATASE INCREASED [None]
  - BLOOD POTASSIUM DECREASED [None]
  - BLOOD SODIUM DECREASED [None]
  - COUGH [None]
  - DEHYDRATION [None]
  - DIZZINESS [None]
  - DYSPHAGIA [None]
  - FOOD INTOLERANCE [None]
  - FOREIGN BODY TRAUMA [None]
  - NECK PAIN [None]
  - ODYNOPHAGIA [None]
  - OESOPHAGITIS [None]
